FAERS Safety Report 13439302 (Version 2)
Quarter: 2017Q2

REPORT INFORMATION
  Report Type: Spontaneous
  Country: US (occurrence: US)
  Receive Date: 20170412
  Receipt Date: 20170529
  Transmission Date: 20170830
  Serious: No
  Sender: FDA-Public Use
  Company Number: US-ASTRAZENECA-2017SE35569

PATIENT
  Sex: Female
  Weight: 61.2 kg

DRUGS (4)
  1. PULMICORT FLEXHALER [Suspect]
     Active Substance: BUDESONIDE
     Indication: ASTHMA
     Dosage: 180 MCG TWO TIMES A DAY
     Route: 055
     Dates: start: 2016
  2. WARFARIN [Concomitant]
     Active Substance: WARFARIN
  3. LISINOPRIL. [Suspect]
     Active Substance: LISINOPRIL
     Indication: BLOOD PRESSURE ABNORMAL
     Route: 048
     Dates: start: 2000
  4. VENTOLIN [Concomitant]
     Active Substance: ALBUTEROL SULFATE
     Indication: INHALATION THERAPY
     Route: 055

REACTIONS (5)
  - Drug dose omission [Unknown]
  - Product quality issue [Unknown]
  - Dyspnoea [Unknown]
  - Intentional device misuse [Unknown]
  - Asthma [Unknown]
